FAERS Safety Report 19110059 (Version 2)
Quarter: 2021Q2

REPORT INFORMATION
  Report Type: Other
  Country: NL (occurrence: NL)
  Receive Date: 20210409
  Receipt Date: 20210614
  Transmission Date: 20210717
  Serious: No
  Sender: FDA-Public Use
  Company Number: NL-TOLMAR, INC.-21NL026167

PATIENT
  Age: 84 Year
  Sex: Male

DRUGS (2)
  1. ELIGARD [Suspect]
     Active Substance: LEUPROLIDE ACETATE
     Dosage: 45 MG, Q 6 MONTH
     Route: 058
     Dates: start: 20200309
  2. ELIGARD [Suspect]
     Active Substance: LEUPROLIDE ACETATE
     Indication: PROSTATE CANCER METASTATIC
     Dosage: 45 MG, Q 6 MONTH
     Route: 058
     Dates: start: 20210309

REACTIONS (3)
  - Injection site mass [Unknown]
  - Abdominal distension [Unknown]
  - Injection site dysaesthesia [Not Recovered/Not Resolved]

NARRATIVE: CASE EVENT DATE: 20210309
